FAERS Safety Report 11983794 (Version 3)
Quarter: 2016Q1

REPORT INFORMATION
  Report Type: Spontaneous
  Country: JP (occurrence: JP)
  Receive Date: 20160201
  Receipt Date: 20160303
  Transmission Date: 20160526
  Serious: Yes (Death)
  Sender: FDA-Public Use
  Company Number: JP-BAYER-2016-011292

PATIENT
  Sex: Male

DRUGS (5)
  1. CLOPIDOGREL [Concomitant]
     Active Substance: CLOPIDOGREL BISULFATE
     Dosage: UNK
     Route: 048
  2. ANTI THROMBIN III [Concomitant]
     Dosage: UNK
  3. THROMBOMODULIN ALFA [Suspect]
     Active Substance: THROMBOMODULIN ALFA
     Indication: DISSEMINATED INTRAVASCULAR COAGULATION
     Dosage: UNK
  4. BAYASPIRIN [Suspect]
     Active Substance: ASPIRIN
     Dosage: UNK
     Route: 048
  5. GABEXATE MESILATE [Concomitant]
     Active Substance: GABEXATE MESYLATE
     Indication: DISSEMINATED INTRAVASCULAR COAGULATION
     Dosage: UNK

REACTIONS (2)
  - Aortic aneurysm rupture [Fatal]
  - Cardio-respiratory arrest [Fatal]
